FAERS Safety Report 9731655 (Version 1)
Quarter: 2013Q4

REPORT INFORMATION
  Report Type: Spontaneous
  Country: US (occurrence: None)
  Receive Date: 20131203
  Receipt Date: 20131203
  Transmission Date: 20140711
  Serious: Yes (Death, Other)
  Sender: FDA-Public Use
  Company Number: ENTC2013-0456

PATIENT
  Age: 86 Year
  Sex: Male

DRUGS (1)
  1. STALEVO (LEVODOPA, CARBIDOPA, ENTACAPONE) [Suspect]
     Indication: PARKINSON^S DISEASE
     Dosage: 50/12.5/200 MG, ORAL
     Route: 048
     Dates: start: 201307

REACTIONS (3)
  - Infarction [None]
  - Renal disorder [None]
  - Peritonitis [None]
